FAERS Safety Report 14717735 (Version 2)
Quarter: 2021Q4

REPORT INFORMATION
  Report Type: Spontaneous
  Country: US (occurrence: US)
  Receive Date: 20180404
  Receipt Date: 20211026
  Transmission Date: 20220303
  Serious: No
  Sender: FDA-Public Use
  Company Number: US-SA-2018SA025692

PATIENT
  Age: 65 Year
  Sex: Female

DRUGS (3)
  1. DUPIXENT [Suspect]
     Active Substance: DUPILUMAB
     Indication: Dermatitis atopic
     Dosage: 300 MG,QOW
     Route: 058
     Dates: start: 20170927
  2. DUPIXENT [Suspect]
     Active Substance: DUPILUMAB
     Indication: Seborrhoeic dermatitis
     Dosage: 300 MG
     Route: 058
     Dates: start: 20171001
  3. DUPIXENT [Suspect]
     Active Substance: DUPILUMAB
     Dosage: 300 MG, QOW
     Route: 058

REACTIONS (9)
  - Platelet count increased [Unknown]
  - Ocular hyperaemia [Unknown]
  - Eyelid margin crusting [Unknown]
  - Lacrimation increased [Unknown]
  - Eye irritation [Recovering/Resolving]
  - Hypersensitivity [Recovering/Resolving]
  - Eye pruritus [Recovering/Resolving]
  - Conjunctivitis [Recovering/Resolving]
  - Product use in unapproved indication [Unknown]

NARRATIVE: CASE EVENT DATE: 20170101
